FAERS Safety Report 13152469 (Version 1)
Quarter: 2017Q1

REPORT INFORMATION
  Report Type: Report from Study
  Country: US (occurrence: US)
  Receive Date: 20170125
  Receipt Date: 20170125
  Transmission Date: 20170428
  Serious: No
  Sender: FDA-Public Use
  Company Number: US-009507513-1701USA005030

PATIENT
  Age: 54 Year
  Sex: Female

DRUGS (1)
  1. PROVENTIL [Suspect]
     Active Substance: ALBUTEROL
     Dosage: HFA, 6.7 GM, TWO PUFFS, FOUR TIMES DAILY, FOR 7 DAYS
     Route: 055

REACTIONS (2)
  - Musculoskeletal stiffness [Unknown]
  - Pain [Unknown]
